FAERS Safety Report 6066044-1 (Version None)
Quarter: 2009Q1

REPORT INFORMATION
  Report Type: 
  Country: None (occurrence: None)
  Receive Date: 20090205
  Receipt Date: 20090127
  Transmission Date: 20090719
  Serious: Yes (Other)
  Sender: FDA-Public Use
  Company Number: NO-BAXTER-2009BH001080

PATIENT
  Age: 64 Year
  Sex: Female

DRUGS (13)
  1. HOLOXAN BAXTER [Suspect]
     Indication: LEIOMYOSARCOMA
     Route: 065
     Dates: start: 20081210, end: 20081210
  2. HOLOXAN BAXTER [Suspect]
     Route: 065
     Dates: start: 20081210, end: 20081210
  3. HOLOXAN BAXTER [Suspect]
     Route: 065
     Dates: start: 20081210, end: 20081210
  4. HOLOXAN BAXTER [Suspect]
     Route: 065
     Dates: start: 20081229, end: 20081229
  5. HOLOXAN BAXTER [Suspect]
     Route: 065
     Dates: start: 20081229, end: 20081229
  6. HOLOXAN BAXTER [Suspect]
     Route: 065
     Dates: start: 20081229, end: 20081229
  7. HOLOXAN BAXTER [Suspect]
     Route: 065
  8. BLEOMYCIN GENERIC [Suspect]
     Indication: LEIOMYOSARCOMA
     Route: 065
  9. CISPLATIN [Suspect]
     Indication: LEIOMYOSARCOMA
     Route: 065
  10. DOXORUBICIN HCL [Suspect]
     Indication: LEIOMYOSARCOMA
     Route: 065
  11. DOXORUBICIN HCL [Suspect]
     Route: 065
     Dates: start: 20081229, end: 20081229
  12. MESNA [Suspect]
     Indication: LEIOMYOSARCOMA
     Route: 065
  13. MESNA [Suspect]
     Route: 065
     Dates: start: 20081229, end: 20081229

REACTIONS (1)
  - ENCEPHALOPATHY [None]
